FAERS Safety Report 4676204-X (Version None)
Quarter: 2005Q2

REPORT INFORMATION
  Report Type: 
  Country: None (occurrence: None)
  Receive Date: 20050527
  Receipt Date: 20040624
  Transmission Date: 20051028
  Serious: No
  Sender: FDA-Public Use
  Company Number: US-GLAXOSMITHKLINE-A0515873A

PATIENT
  Age: 80 Year
  Sex: Male

DRUGS (10)
  1. WELLBUTRIN XL [Suspect]
     Indication: DEPRESSION
     Dosage: 150MG PER DAY
     Route: 048
     Dates: start: 20040620
  2. EFFEXOR [Concomitant]
  3. ARICEPT [Concomitant]
  4. METOPROLOL SUCCINATE [Concomitant]
  5. NEURONTIN [Concomitant]
  6. COLCHICINE [Concomitant]
  7. LIPITOR [Concomitant]
  8. TERAZOSIN [Concomitant]
  9. PROSCAR [Concomitant]
  10. INDOMETHACIN [Concomitant]

REACTIONS (7)
  - DRY SKIN [None]
  - ERYTHEMA [None]
  - OEDEMA [None]
  - PAIN [None]
  - PRURITUS [None]
  - RASH [None]
  - SKIN EXFOLIATION [None]
